FAERS Safety Report 8564856-3 (Version None)
Quarter: 2012Q3

REPORT INFORMATION
  Report Type: 
  Country: None (occurrence: None)
  Receive Date: 20120803
  Receipt Date: 20120730
  Transmission Date: 20120928
  Serious: Yes (Death)
  Sender: FDA-Public Use
  Company Number: DK-CELGENEUS-044-21880-12073183

PATIENT
  Sex: Male
  Weight: 90 kg

DRUGS (6)
  1. BORTEZOMIB [Concomitant]
     Indication: DISEASE PROGRESSION
  2. ADRIAMYCIN PFS [Concomitant]
     Indication: DISEASE PROGRESSION
     Route: 065
  3. REVLIMID [Suspect]
     Indication: MYELOMA RECURRENCE
     Dosage: 25 MILLIGRAM
     Route: 048
     Dates: start: 20090406, end: 20101001
  4. DEXAMETHASONE [Concomitant]
     Indication: MYELOMA RECURRENCE
     Route: 065
     Dates: start: 20090401, end: 20101001
  5. CYCLOPHOSPHAMIDE [Concomitant]
     Indication: DISEASE PROGRESSION
     Route: 065
  6. THALIDOMIDE [Suspect]
     Indication: DISEASE PROGRESSION
     Route: 048

REACTIONS (1)
  - ACUTE MYELOID LEUKAEMIA [None]
